FAERS Safety Report 25619430 (Version 2)
Quarter: 2025Q3

REPORT INFORMATION
  Report Type: Report from Study
  Country: JP (occurrence: JP)
  Receive Date: 20250729
  Receipt Date: 20250804
  Transmission Date: 20251021
  Serious: Yes (Death, Hospitalization, Other)
  Sender: PFIZER
  Company Number: JP-PFIZER INC-PV202500062567

PATIENT
  Age: 70 Year
  Sex: Male
  Weight: 53 kg

DRUGS (19)
  1. ELRANATAMAB [Suspect]
     Active Substance: ELRANATAMAB
     Dosage: 76 MG, WEEKLY
     Dates: start: 20241015
  2. ELRANATAMAB [Suspect]
     Active Substance: ELRANATAMAB
     Dates: start: 20241112
  3. ELRANATAMAB [Suspect]
     Active Substance: ELRANATAMAB
     Dates: start: 20250107
  4. ELRANATAMAB [Suspect]
     Active Substance: ELRANATAMAB
     Dates: start: 20250121
  5. ELRANATAMAB [Suspect]
     Active Substance: ELRANATAMAB
  6. ZOVIRAX [Concomitant]
     Active Substance: ACYCLOVIR
     Indication: Drug therapy
     Route: 048
     Dates: start: 20230203, end: 20250202
  7. PIMOBENDAN [Concomitant]
     Active Substance: PIMOBENDAN
     Indication: Drug therapy
     Route: 048
     Dates: start: 20241221, end: 20250202
  8. SULFAMETHOXAZOLE\TRIMETHOPRIM [Concomitant]
     Active Substance: SULFAMETHOXAZOLE\TRIMETHOPRIM
     Indication: Drug therapy
     Route: 048
     Dates: start: 20240524, end: 20250202
  9. DAPAGLIFLOZIN [Concomitant]
     Active Substance: DAPAGLIFLOZIN
     Indication: Drug therapy
     Route: 048
     Dates: end: 20250202
  10. VORICONAZOLE [Concomitant]
     Active Substance: VORICONAZOLE
     Indication: Drug therapy
     Route: 048
     Dates: start: 20230203, end: 20250202
  11. BISOPROLOL FUMARATE [Concomitant]
     Active Substance: BISOPROLOL FUMARATE
     Indication: Drug therapy
     Route: 048
     Dates: start: 20230624, end: 20250202
  12. GUAIAZULENE [Concomitant]
     Active Substance: GUAIAZULENE
     Indication: Anal rash
     Dates: start: 20241229, end: 20250202
  13. BISOPROLOL [Concomitant]
     Active Substance: BISOPROLOL
     Indication: Sinus tachycardia
     Route: 058
     Dates: start: 20241220, end: 20241224
  14. DAYVIGO [Concomitant]
     Active Substance: LEMBOREXANT
     Indication: Insomnia
     Route: 048
     Dates: start: 20241014
  15. FUROSEMIDE [Concomitant]
     Active Substance: FUROSEMIDE
     Indication: Drug therapy
     Route: 048
     Dates: start: 20230220, end: 20241221
  16. SPIRONOLACTONE [Concomitant]
     Active Substance: SPIRONOLACTONE
     Indication: Drug therapy
     Route: 048
  17. SPIRONOLACTONE [Concomitant]
     Active Substance: SPIRONOLACTONE
     Route: 048
     Dates: start: 20241221
  18. SAMSCA [Concomitant]
     Active Substance: TOLVAPTAN
     Indication: Drug therapy
     Route: 048
  19. SAMSCA [Concomitant]
     Active Substance: TOLVAPTAN
     Route: 048
     Dates: start: 20241217, end: 20241221

REACTIONS (8)
  - Cardiac failure [Fatal]
  - Hypotension [Recovered/Resolved]
  - Chills [Recovered/Resolved]
  - Flushing [Recovered/Resolved]
  - Dizziness [Recovered/Resolved]
  - Fall [Recovered/Resolved]
  - Seizure [Recovered/Resolved]
  - Cytokine release syndrome [Unknown]

NARRATIVE: CASE EVENT DATE: 20241016
